FAERS Safety Report 23089735 (Version 2)
Quarter: 2023Q4

REPORT INFORMATION
  Report Type: Spontaneous
  Country: US (occurrence: US)
  Receive Date: 20231020
  Receipt Date: 20231020
  Transmission Date: 20240110
  Serious: Yes (Life-Threatening, Hospitalization, Other)
  Sender: FDA-Public Use
  Company Number: US-MYLANLABS-2023M1110782

PATIENT
  Age: 45 Year
  Sex: Male

DRUGS (4)
  1. FENTANYL [Suspect]
     Active Substance: FENTANYL\FENTANYL CITRATE
     Indication: Sedative therapy
     Dosage: UNK, FENTANYL INFUSION. HE WAS RECEIVING 220 MICROG/H OF FENTANYL AND 5MG/HR OF VERSED (INFUSION)
     Route: 065
  2. METHADONE [Suspect]
     Active Substance: METHADONE HYDROCHLORIDE
     Indication: Product used for unknown indication
     Dosage: UNK
     Route: 065
  3. MIDAZOLAM [Concomitant]
     Active Substance: MIDAZOLAM
     Indication: Sedative therapy
     Dosage: MIDAZOLAM INFUSIONS; HE WAS RECEIVING 220 MICROG/H OF FENTANYL AND 5MG/HR OF VERSED (INFUSION)
     Route: 065
  4. PROPOFOL [Concomitant]
     Active Substance: PROPOFOL
     Indication: Sedative therapy
     Dosage: UNK
     Route: 065

REACTIONS (5)
  - Muscle rigidity [Recovering/Resolving]
  - Ventricular dyssynchrony [Recovered/Resolved]
  - Respiratory failure [Recovering/Resolving]
  - Drug abuse [Unknown]
  - Off label use [Unknown]
